FAERS Safety Report 17636774 (Version 1)
Quarter: 2020Q2

REPORT INFORMATION
  Report Type: Spontaneous
  Country: US (occurrence: US)
  Receive Date: 20200407
  Receipt Date: 20200407
  Transmission Date: 20200713
  Serious: Yes (Other)
  Sender: FDA-Public Use
  Company Number: US-STRIDES ARCOLAB LIMITED-2020SP004457

PATIENT
  Age: 79 Year
  Sex: Female

DRUGS (1)
  1. LIDOCAINE. [Suspect]
     Active Substance: LIDOCAINE
     Indication: LOCAL ANAESTHESIA
     Dosage: 60 MILLILITER TO THE LEFT SUBCLAVIAN AREA
     Route: 058

REACTIONS (3)
  - Unresponsive to stimuli [Recovered/Resolved]
  - Local anaesthetic systemic toxicity [Recovered/Resolved]
  - Hypotension [Recovered/Resolved]
